FAERS Safety Report 4470149-6 (Version None)
Quarter: 2004Q3

REPORT INFORMATION
  Report Type: 
  Country: None (occurrence: None)
  Receive Date: 20040910
  Receipt Date: 20040728
  Transmission Date: 20050211
  Serious: No
  Sender: FDA-Public Use
  Company Number: 2004226657US

PATIENT
  Sex: Female

DRUGS (1)
  1. BEXTRA [Suspect]

REACTIONS (2)
  - DRUG INEFFECTIVE [None]
  - UNEVALUABLE EVENT [None]
